FAERS Safety Report 9388516 (Version 3)
Quarter: 2014Q2

REPORT INFORMATION
  Report Type: Spontaneous
  Country: US (occurrence: US)
  Receive Date: 20130708
  Receipt Date: 20140513
  Transmission Date: 20141212
  Serious: Yes (Death)
  Sender: FDA-Public Use
  Company Number: US-GLAXOSMITHKLINE-A1030993A

PATIENT
  Age: 60 Year
  Sex: Male
  Weight: 109.5 kg

DRUGS (1)
  1. AVANDIA [Suspect]
     Indication: DIABETES MELLITUS
     Dosage: 8MG PER DAY
     Route: 048
     Dates: start: 20020709, end: 20090301

REACTIONS (7)
  - Death [Fatal]
  - Cerebrovascular accident [Unknown]
  - Cardiac failure congestive [Unknown]
  - Cardiomyopathy [Unknown]
  - Renal failure acute [Unknown]
  - Respiratory failure [Unknown]
  - Atrial fibrillation [Unknown]
